FAERS Safety Report 12546441 (Version 2)
Quarter: 2016Q3

REPORT INFORMATION
  Report Type: Spontaneous
  Country: US (occurrence: US)
  Receive Date: 20160711
  Receipt Date: 20160817
  Transmission Date: 20161109
  Serious: Yes (Death, Congenital Anomaly, Other)
  Sender: FDA-Public Use
  Company Number: US-PFIZER INC-2016334727

PATIENT
  Sex: Male

DRUGS (4)
  1. HALOPERIDOL. [Suspect]
     Active Substance: HALOPERIDOL
     Indication: AGITATION
     Dosage: 15 MG, DAILY
     Route: 064
  2. DILANTIN [Suspect]
     Active Substance: PHENYTOIN
     Dosage: 300 MG, DAILY
     Route: 064
  3. METHYLPHENIDATE HYDROCHLORIDE. [Suspect]
     Active Substance: METHYLPHENIDATE HYDROCHLORIDE
     Dosage: 30 MG, DAILY
     Route: 064
  4. TETRACYCLINE [Concomitant]
     Active Substance: TETRACYCLINE
     Dosage: UNK

REACTIONS (8)
  - Brain injury [Fatal]
  - Syndactyly [Unknown]
  - Deformity [Unknown]
  - Congenital heart valve disorder [Unknown]
  - Maternal exposure during pregnancy [Fatal]
  - Subdural haemorrhage neonatal [Fatal]
  - Premature baby [Unknown]
  - Adactyly [Unknown]
